FAERS Safety Report 21045722 (Version 1)
Quarter: 2022Q3

REPORT INFORMATION
  Report Type: Spontaneous
  Country: JP (occurrence: JP)
  Receive Date: 20220706
  Receipt Date: 20220706
  Transmission Date: 20221027
  Serious: Yes (Hospitalization)
  Sender: FDA-Public Use
  Company Number: JP-CHUGAI-2022024706

PATIENT
  Age: 73 Year
  Sex: Female
  Weight: 50 kg

DRUGS (2)
  1. GAZYVA [Suspect]
     Active Substance: OBINUTUZUMAB
     Indication: Follicular lymphoma
     Route: 041
     Dates: start: 202012
  2. GAZYVA [Suspect]
     Active Substance: OBINUTUZUMAB
     Dosage: ONCE EVERY TWO MONTHS
     Route: 041
     Dates: start: 202109

REACTIONS (1)
  - Lung disorder [Recovering/Resolving]

NARRATIVE: CASE EVENT DATE: 20220508
